FAERS Safety Report 9679035 (Version 4)
Quarter: 2015Q1

REPORT INFORMATION
  Report Type: Spontaneous
  Country: US (occurrence: US)
  Receive Date: 20131108
  Receipt Date: 20150303
  Transmission Date: 20150721
  Serious: Yes (Other)
  Sender: FDA-Public Use
  Company Number: US-PFIZER INC-2013318557

PATIENT
  Age: 71 Year
  Sex: Female

DRUGS (1)
  1. LYRICA [Suspect]
     Active Substance: PREGABALIN
     Indication: NEUROPATHY PERIPHERAL
     Dosage: 75 MG, 3X/DAY (1IN AM, 2IN PM)
     Dates: start: 2012

REACTIONS (8)
  - Hypoaesthesia [Not Recovered/Not Resolved]
  - Cerebrovascular accident [Unknown]
  - Hypertension [Unknown]
  - Pain [Unknown]
  - Limb discomfort [Unknown]
  - Paraesthesia [Unknown]
  - Musculoskeletal disorder [Unknown]
  - Eye disorder [Unknown]

NARRATIVE: CASE EVENT DATE: 201310
